FAERS Safety Report 8167899-7 (Version None)
Quarter: 2012Q1

REPORT INFORMATION
  Report Type: 
  Country: None (occurrence: None)
  Receive Date: 20120227
  Receipt Date: 20120216
  Transmission Date: 20120608
  Serious: Yes (Life-Threatening, Other)
  Sender: FDA-Public Use
  Company Number: US-GLAXOSMITHKLINE-A0693628A

PATIENT
  Age: 37 Year
  Sex: Male

DRUGS (3)
  1. ENALAPRIL MALEATE [Concomitant]
     Indication: PROPHYLAXIS
     Dates: start: 20050101
  2. METFORMIN HCL [Concomitant]
  3. ROSIGLITAZONE MALEATE [Suspect]
     Indication: TYPE 2 DIABETES MELLITUS
     Dosage: 4MG TWICE PER DAY
     Route: 048
     Dates: start: 20030101, end: 20070101

REACTIONS (9)
  - DYSPNOEA [None]
  - INJURY [None]
  - CARDIAC VALVE DISEASE [None]
  - PAIN [None]
  - CHEST PAIN [None]
  - CARDIAC DISORDER [None]
  - PAIN IN EXTREMITY [None]
  - MYOCARDIAL INFARCTION [None]
  - CARDIAC MURMUR [None]
